FAERS Safety Report 4472744-7 (Version None)
Quarter: 2004Q4

REPORT INFORMATION
  Report Type: 
  Country: None (occurrence: None)
  Receive Date: 20041012
  Receipt Date: 20041012
  Transmission Date: 20050328
  Serious: Yes (Hospitalization)
  Sender: FDA-Public Use
  Company Number: None

PATIENT
  Age: 87 Year
  Sex: Male

DRUGS (3)
  1. ROCEPHIN [Suspect]
     Dosage: 1 GM IV Q 12 H
     Route: 042
     Dates: start: 20031101
  2. ROCEPHIN [Suspect]
     Dosage: 1 GM IV Q 12 H
     Route: 042
     Dates: start: 20031104
  3. ZITHROMAX [Suspect]
     Dosage: 500 MG PO X 1
     Route: 048

REACTIONS (7)
  - ABNORMAL BEHAVIOUR [None]
  - AGITATION [None]
  - FLUSHING [None]
  - MOANING [None]
  - PAIN [None]
  - PRURITUS [None]
  - RESTLESSNESS [None]
